FAERS Safety Report 6786708-1 (Version None)
Quarter: 2010Q2

REPORT INFORMATION
  Report Type: 
  Country: None (occurrence: None)
  Receive Date: 20100623
  Receipt Date: 20100616
  Transmission Date: 20101027
  Serious: Yes (Death)
  Sender: FDA-Public Use
  Company Number: US-RB-026005-09

PATIENT
  Sex: Male

DRUGS (1)
  1. SUBOXONE [Suspect]
     Route: 060

REACTIONS (3)
  - ABDOMINAL DISCOMFORT [None]
  - DEATH [None]
  - DRUG WITHDRAWAL SYNDROME [None]
